FAERS Safety Report 15574318 (Version 2)
Quarter: 2019Q1

REPORT INFORMATION
  Report Type: Spontaneous
  Country: US (occurrence: US)
  Receive Date: 20181101
  Receipt Date: 20190128
  Transmission Date: 20190417
  Serious: No
  Sender: FDA-Public Use
  Company Number: US-SA-2018SA270261

PATIENT
  Sex: Female

DRUGS (1)
  1. DUPIXENT [Suspect]
     Active Substance: DUPILUMAB
     Indication: DERMATITIS ATOPIC
     Dosage: UNK UNK, QOW
     Route: 058
     Dates: start: 20180814

REACTIONS (6)
  - Product dose omission [Unknown]
  - Pain in extremity [Unknown]
  - Influenza [Unknown]
  - Myalgia [Unknown]
  - Eye pain [Unknown]
  - Vision blurred [Unknown]
